FAERS Safety Report 10613985 (Version 1)
Quarter: 2014Q4

REPORT INFORMATION
  Report Type: Report from Study
  Country: US (occurrence: US)
  Receive Date: 20141128
  Receipt Date: 20141128
  Transmission Date: 20150529
  Serious: Yes (Other)
  Sender: FDA-Public Use
  Company Number: US-BRISTOL-MYERS SQUIBB COMPANY-21634704

PATIENT
  Age: 58 Year
  Sex: Male
  Weight: 121.99 kg

DRUGS (6)
  1. IPILIMUMAB [Suspect]
     Active Substance: IPILIMUMAB
     Indication: METASTATIC MALIGNANT MELANOMA
     Dosage: 350MG?LAST DOSE: 11-SEP-2014
     Route: 042
  2. QUINAPRIL [Concomitant]
     Active Substance: QUINAPRIL\QUINAPRIL HYDROCHLORIDE
  3. TOPROL XL [Concomitant]
     Active Substance: METOPROLOL SUCCINATE
  4. ASPIRIN. [Concomitant]
     Active Substance: ASPIRIN
  5. INTERFERON ALFA-2B [Suspect]
     Active Substance: INTERFERON ALFA-2B
     Indication: METASTATIC MALIGNANT MELANOMA
     Dosage: 1 DF: 15MU?LAST DOSE: 07-NOV-2014
     Route: 058
  6. CADUET [Concomitant]
     Active Substance: AMLODIPINE BESYLATE\ATORVASTATIN CALCIUM

REACTIONS (1)
  - VIIth nerve paralysis [Unknown]

NARRATIVE: CASE EVENT DATE: 20141108
